FAERS Safety Report 11976173 (Version 1)
Quarter: 2016Q1

REPORT INFORMATION
  Report Type: Other
  Country: CN (occurrence: CN)
  Receive Date: 20160129
  Receipt Date: 20160129
  Transmission Date: 20160526
  Serious: Yes (Hospitalization, Other)
  Sender: FDA-Public Use
  Company Number: CN-HETERO LABS LTD-1047070

PATIENT
  Age: 76 Year
  Sex: Male

DRUGS (7)
  1. BENZHEXOL [Concomitant]
     Active Substance: TRIHEXYPHENIDYL
     Route: 065
  2. PERPHENAZINE. [Concomitant]
     Active Substance: PERPHENAZINE
  3. OPAMINE [Concomitant]
  4. LITHIUM. [Suspect]
     Active Substance: LITHIUM
     Indication: MANIA
  5. ISOPRENALINE [Concomitant]
     Active Substance: ISOPROTERENOL HYDROCHLORIDE
     Route: 065
  6. LOSARTAN POTASSIUM. [Concomitant]
     Active Substance: LOSARTAN POTASSIUM
  7. ARAMINE [Concomitant]
     Active Substance: METARAMINOL BITARTRATE
     Route: 065

REACTIONS (9)
  - Sinus arrest [Recovering/Resolving]
  - Electrocardiogram ST segment abnormal [Recovering/Resolving]
  - Sinus arrhythmia [Recovering/Resolving]
  - Toxicity to various agents [Recovering/Resolving]
  - Supraventricular tachycardia [Recovering/Resolving]
  - Sinus bradycardia [Recovering/Resolving]
  - Atrioventricular block second degree [Recovering/Resolving]
  - Nodal rhythm [Recovering/Resolving]
  - Rhythm idioventricular [Recovering/Resolving]
